FAERS Safety Report 5992690-7 (Version None)
Quarter: 2008Q4

REPORT INFORMATION
  Report Type: 
  Country: None (occurrence: None)
  Receive Date: 20081211
  Receipt Date: 20080527
  Transmission Date: 20090506
  Serious: No
  Sender: FDA-Public Use
  Company Number: US-AMGEN-KDL281339

PATIENT
  Sex: Female

DRUGS (12)
  1. ENBREL [Suspect]
     Indication: PSORIASIS
     Route: 058
     Dates: start: 20080422
  2. METHOCARBAMOL [Concomitant]
     Route: 048
  3. KLOR-CON [Concomitant]
  4. LISINOPRIL [Concomitant]
     Route: 048
  5. QUININE SULFATE [Concomitant]
     Route: 048
  6. BUMETANIDE [Concomitant]
     Route: 048
  7. ASPIRIN [Concomitant]
  8. TYLENOL (CAPLET) [Concomitant]
     Route: 048
  9. TRIAMCINOLONE [Concomitant]
     Route: 061
  10. UNSPECIFIED TOPICAL PRODUCT [Concomitant]
  11. FOLIC ACID [Concomitant]
     Route: 048
  12. METHOTREXATE [Concomitant]
     Route: 048

REACTIONS (3)
  - ASTHENOPIA [None]
  - BREAST PAIN [None]
  - EYELID OEDEMA [None]
